FAERS Safety Report 24354521 (Version 4)
Quarter: 2025Q1

REPORT INFORMATION
  Report Type: Spontaneous
  Country: PL (occurrence: PL)
  Receive Date: 20240923
  Receipt Date: 20250318
  Transmission Date: 20250409
  Serious: Yes (Life-Threatening, Hospitalization)
  Sender: BEIGENE
  Company Number: PL-BEIGENE-BGN-2024-015057

PATIENT
  Age: 61 Year

DRUGS (6)
  1. BRUKINSA [Suspect]
     Active Substance: ZANUBRUTINIB
     Indication: Chronic lymphocytic leukaemia
     Dosage: 160 MILLIGRAM, BID
  2. METHYLPREDNISOLONE [Concomitant]
     Active Substance: METHYLPREDNISOLONE
  3. GLICLAZIDE [Concomitant]
     Active Substance: GLICLAZIDE
  4. Crosuvo [Concomitant]
  5. GLUCOPHAGE [Concomitant]
     Active Substance: METFORMIN HYDROCHLORIDE
  6. ALLOPURINOL [Concomitant]
     Active Substance: ALLOPURINOL
     Dosage: 300 MILLIGRAM, BID

REACTIONS (10)
  - Tumour lysis syndrome [Recovered/Resolved]
  - Septic shock [Unknown]
  - Disseminated intravascular coagulation [Unknown]
  - Respiratory failure [Unknown]
  - Pneumonia [Unknown]
  - Clostridium difficile infection [Unknown]
  - Activated partial thromboplastin time prolonged [Unknown]
  - Prothrombin time prolonged [Unknown]
  - Circulatory collapse [Unknown]
  - Weight decreased [Recovered/Resolved]
